FAERS Safety Report 20449404 (Version 1)
Quarter: 2022Q1

REPORT INFORMATION
  Report Type: Report from Study
  Country: US (occurrence: US)
  Receive Date: 20220209
  Receipt Date: 20220209
  Transmission Date: 20220424
  Serious: No
  Sender: FDA-Public Use
  Company Number: US-REGENERON PHARMACEUTICALS, INC.-2022-20916

PATIENT
  Sex: Female

DRUGS (2)
  1. CASIRIVIMAB\IMDEVIMAB [Suspect]
     Active Substance: CASIRIVIMAB\IMDEVIMAB
     Indication: COVID-19
     Dosage: FOUR INJECTIONS
     Route: 058
     Dates: start: 20210826, end: 20210826
  2. CASIRIVIMAB\IMDEVIMAB [Suspect]
     Active Substance: CASIRIVIMAB\IMDEVIMAB
     Dosage: TWO INJECTIONS
     Route: 058
     Dates: start: 20220117, end: 20220117

REACTIONS (4)
  - COVID-19 [Not Recovered/Not Resolved]
  - Injection site rash [Not Recovered/Not Resolved]
  - Duplicate therapy error [Unknown]
  - Incorrect dose administered [Unknown]

NARRATIVE: CASE EVENT DATE: 20220101
